FAERS Safety Report 7515005-1 (Version None)
Quarter: 2011Q2

REPORT INFORMATION
  Report Type: 
  Country: None (occurrence: None)
  Receive Date: 20110601
  Receipt Date: 20110518
  Transmission Date: 20111010
  Serious: Yes (Other)
  Sender: FDA-Public Use
  Company Number: PHHY2010BR82216

PATIENT
  Age: 60 Year
  Sex: Female
  Weight: 64 kg

DRUGS (5)
  1. CIATIDINA [Concomitant]
     Dosage: 1 DF, 300 MG
     Route: 048
     Dates: start: 20101201
  2. DIOVAN HCT [Suspect]
     Indication: HYPERTENSION
     Dosage: 1 DF, 320 MG VALS AND 12.5 MG HYDR
     Route: 048
  3. CHLOROQUINE PHOSPHATE [Concomitant]
     Dosage: 250 MG, UNK
  4. MELOXICAM [Concomitant]
     Dosage: 15 MG, UNK
  5. HYDROCHLOROTHIAZIDE [Concomitant]
     Dosage: 12.5 MG, UNK

REACTIONS (3)
  - BURSITIS [None]
  - HYPERHIDROSIS [None]
  - ASTHENIA [None]
